FAERS Safety Report 25334274 (Version 5)
Quarter: 2025Q3

REPORT INFORMATION
  Report Type: Report from Study
  Country: US (occurrence: US)
  Receive Date: 20250520
  Receipt Date: 20250825
  Transmission Date: 20251021
  Serious: No
  Sender: SUNOVION
  Company Number: US-SMPA-2025SPA005895AA

PATIENT
  Age: 80 Year
  Sex: Male

DRUGS (12)
  1. ORGOVYX [Suspect]
     Active Substance: RELUGOLIX
     Indication: Prostate cancer
     Dosage: 360 MG, SINGLE
     Route: 048
     Dates: start: 202411, end: 202411
  2. ORGOVYX [Suspect]
     Active Substance: RELUGOLIX
     Dosage: 120 MG, QD
     Route: 048
     Dates: start: 202411
  3. XTANDI [Concomitant]
     Active Substance: ENZALUTAMIDE
     Indication: Prostate cancer
     Dosage: 160 MG, QD
     Route: 048
  4. LISINOPRIL [Concomitant]
     Active Substance: LISINOPRIL
  5. LOVASTATIN [Concomitant]
     Active Substance: LOVASTATIN
  6. VITAMINS [Concomitant]
     Active Substance: VITAMINS
  7. VITAMIN B COMPLEX [Concomitant]
     Active Substance: CYANOCOBALAMIN\DEXPANTHENOL\NIACINAMIDE\PYRIDOXINE HYDROCHLORIDE\RIBOFLAVIN 5^-PHOSPHATE SODIUM\THIA
  8. ZINC [Concomitant]
     Active Substance: ZINC
  9. CALCIUM\MAGNESIUM [Concomitant]
     Active Substance: CALCIUM\MAGNESIUM
  10. CRANBERRY [Concomitant]
     Active Substance: CRANBERRY
  11. Focus Factor [Concomitant]
  12. LOPERAMIDE [Concomitant]
     Active Substance: LOPERAMIDE

REACTIONS (6)
  - Chest pain [Unknown]
  - Weight fluctuation [Unknown]
  - Back pain [Unknown]
  - Arthralgia [Unknown]
  - Diarrhoea [Unknown]
  - Asthenia [Unknown]
